FAERS Safety Report 10454276 (Version 2)
Quarter: 2014Q3

REPORT INFORMATION
  Report Type: Other
  Country: DE (occurrence: US)
  Receive Date: 20140915
  Receipt Date: 20140918
  Transmission Date: 20150326
  Serious: Yes (Hospitalization)
  Sender: FDA-Public Use
  Company Number: US-FRI-1000070565

PATIENT
  Age: 2 Year
  Sex: Female

DRUGS (2)
  1. MEMANTINE [Suspect]
     Active Substance: MEMANTINE
     Route: 048
  2. DONEPEZIL [Suspect]
     Active Substance: DONEPEZIL
     Route: 048

REACTIONS (4)
  - Agitation [Recovered/Resolved]
  - Encephalopathy [Recovered/Resolved]
  - Accidental exposure to product by child [Recovered/Resolved]
  - Hallucination, visual [Recovered/Resolved]
